FAERS Safety Report 5491774-X (Version None)
Quarter: 2007Q4

REPORT INFORMATION
  Report Type: 
  Country: None (occurrence: None)
  Receive Date: 20071019
  Receipt Date: 20071019
  Transmission Date: 20080405
  Serious: Yes (Life-Threatening)
  Sender: FDA-Public Use
  Company Number: None

PATIENT
  Age: 28 Year

DRUGS (1)
  1. RISPERDAL [Suspect]

REACTIONS (4)
  - DYSKINESIA [None]
  - DYSPNOEA [None]
  - SWOLLEN TONGUE [None]
  - VOMITING [None]
